FAERS Safety Report 14846903 (Version 1)
Quarter: 2018Q2

REPORT INFORMATION
  Report Type: Spontaneous
  Country: US (occurrence: US)
  Receive Date: 20180504
  Receipt Date: 20180504
  Transmission Date: 20180711
  Serious: Yes (Other)
  Sender: FDA-Public Use
  Company Number: US-PFIZER INC-2018182688

PATIENT
  Age: 52 Year
  Sex: Female

DRUGS (1)
  1. XELJANZ XR [Suspect]
     Active Substance: TOFACITINIB CITRATE
     Dosage: 11 MG, ONCE A DAY, TABLET EXTENDED RELEASE 24 HOUR 1 TABLET
     Route: 048

REACTIONS (4)
  - Arthropathy [Unknown]
  - Ulcerative keratitis [Unknown]
  - Limb discomfort [Unknown]
  - Chest pain [Unknown]
